FAERS Safety Report 6072282-4 (Version None)
Quarter: 2009Q1

REPORT INFORMATION
  Report Type: 
  Country: None (occurrence: None)
  Receive Date: 20090206
  Receipt Date: 20090206
  Transmission Date: 20090719
  Serious: Yes (Other)
  Sender: FDA-Public Use
  Company Number: None

PATIENT
  Sex: Male
  Weight: 88.4514 kg

DRUGS (2)
  1. PAXIL CR [Suspect]
     Indication: ANXIETY
     Dosage: I TABLET DAILY PO
     Route: 048
     Dates: start: 20070601, end: 20081231
  2. PAXIL CR [Suspect]
     Indication: STRESS
     Dosage: I TABLET DAILY PO
     Route: 048
     Dates: start: 20070601, end: 20081231

REACTIONS (4)
  - HEADACHE [None]
  - INSOMNIA [None]
  - PAIN [None]
  - SLEEP DISORDER [None]
